FAERS Safety Report 21004913 (Version 6)
Quarter: 2022Q3

REPORT INFORMATION
  Report Type: Report from Study
  Country: CN (occurrence: CN)
  Receive Date: 20220624
  Receipt Date: 20220811
  Transmission Date: 20221027
  Serious: Yes (Hospitalization)
  Sender: FDA-Public Use
  Company Number: CN-UCBSA-2022034085

PATIENT
  Age: 45 Year
  Sex: Female
  Weight: 38 kg

DRUGS (6)
  1. BRIVARACETAM [Suspect]
     Active Substance: BRIVARACETAM
     Indication: Partial seizures
     Dosage: 50 MILLIGRAM IN THE EVENING
     Route: 048
     Dates: start: 20220610, end: 20220610
  2. BRIVARACETAM [Suspect]
     Active Substance: BRIVARACETAM
     Dosage: DOSE TAKEN TWICE ACCIDENTALLY IN THE MORNING
     Route: 048
     Dates: start: 20220611, end: 20220611
  3. BRIVARACETAM [Suspect]
     Active Substance: BRIVARACETAM
     Dosage: 50 MILLIGRAM, 2X/DAY (BID)
     Route: 048
     Dates: start: 20220613
  4. OXCARBAZEPINE [Concomitant]
     Active Substance: OXCARBAZEPINE
     Indication: Epilepsy
     Dosage: 0.6 GRAM, 2X/DAY (BID)
     Route: 048
     Dates: start: 20170712
  5. LAMOTRIGINE [Concomitant]
     Active Substance: LAMOTRIGINE
     Indication: Epilepsy
     Dosage: 125 MG QM, 112.5MG QN
     Route: 048
     Dates: start: 20211201
  6. ESTAZOLAM [Concomitant]
     Active Substance: ESTAZOLAM
     Indication: Sleep disorder
     Dosage: 1 TABLET QN
     Route: 048
     Dates: start: 202110

REACTIONS (1)
  - Accidental overdose [Recovered/Resolved]

NARRATIVE: CASE EVENT DATE: 20220611
